FAERS Safety Report 8941953 (Version 1)
Quarter: 2012Q4

REPORT INFORMATION
  Report Type: Report from Study
  Country: CA (occurrence: CA)
  Receive Date: 20121203
  Receipt Date: 20121203
  Transmission Date: 20130627
  Serious: Yes (Other)
  Sender: FDA-Public Use
  Company Number: CA-JNJFOC-20121112022

PATIENT
  Age: 19 Year
  Sex: Male
  Weight: 58 kg

DRUGS (1)
  1. REMICADE [Suspect]
     Indication: ANKYLOSING SPONDYLITIS
     Route: 042
     Dates: start: 20120124

REACTIONS (4)
  - Chest pain [Unknown]
  - Dyspnoea [Unknown]
  - Frequent bowel movements [Unknown]
  - Pyrexia [Unknown]
